FAERS Safety Report 6157323-8 (Version None)
Quarter: 2009Q2

REPORT INFORMATION
  Report Type: 
  Country: None (occurrence: None)
  Receive Date: 20090416
  Receipt Date: 20090401
  Transmission Date: 20091009
  Serious: Yes (Hospitalization)
  Sender: FDA-Public Use
  Company Number: DE-GENENTECH-281111

PATIENT
  Sex: Female

DRUGS (11)
  1. BEVACIZUMAB [Suspect]
     Indication: LUNG NEOPLASM
     Dosage: 900 MG, Q3W
     Route: 042
     Dates: start: 20080724
  2. GEMCITABINE HCL [Suspect]
     Indication: LUNG NEOPLASM
     Dosage: 2000 MG, Q3W
     Route: 042
     Dates: start: 20080724
  3. CISPLATIN [Suspect]
     Indication: LUNG NEOPLASM
     Dosage: 120 MG, Q3W
     Route: 042
     Dates: start: 20080724
  4. PANTOZOL [Concomitant]
     Indication: DRUG USE FOR UNKNOWN INDICATION
     Dosage: UNK
  5. ALLOPURINOL [Concomitant]
     Indication: DRUG USE FOR UNKNOWN INDICATION
     Dosage: UNK
  6. KALINOR [Concomitant]
     Indication: DRUG USE FOR UNKNOWN INDICATION
     Dosage: UNK
  7. THEOPHYLLINE [Concomitant]
     Indication: DRUG USE FOR UNKNOWN INDICATION
     Dosage: UNK
  8. BRONCHORETARD FORTE [Concomitant]
     Indication: DRUG USE FOR UNKNOWN INDICATION
     Dosage: UNK
  9. METOCLOPRAMIDE [Concomitant]
     Indication: DRUG USE FOR UNKNOWN INDICATION
  10. KALIUM RETARD [Concomitant]
     Indication: DRUG USE FOR UNKNOWN INDICATION
  11. LOPEDIUM [Concomitant]
     Indication: DRUG USE FOR UNKNOWN INDICATION

REACTIONS (3)
  - DEHYDRATION [None]
  - PYREXIA [None]
  - UNEVALUABLE EVENT [None]
